FAERS Safety Report 7473857-8 (Version None)
Quarter: 2011Q2

REPORT INFORMATION
  Report Type: 
  Country: None (occurrence: None)
  Receive Date: 20110511
  Receipt Date: 20110505
  Transmission Date: 20111010
  Serious: Yes (Other)
  Sender: FDA-Public Use
  Company Number: ES-MEDIMMUNE-MEDI-0013162

PATIENT
  Age: 18 Month
  Sex: Male
  Weight: 10 kg

DRUGS (4)
  1. ACYCLOVIR [Concomitant]
     Indication: PROPHYLAXIS
     Route: 048
     Dates: start: 20100901
  2. GAMMAGLOBULINA POLYVALENTE [Concomitant]
     Indication: PROPHYLAXIS
     Route: 042
  3. SYNAGIS [Suspect]
     Route: 030
     Dates: start: 20101214, end: 20101214
  4. COTRIM [Concomitant]
     Indication: PROPHYLAXIS
     Route: 048

REACTIONS (3)
  - PANCYTOPENIA [None]
  - GRAFT VERSUS HOST DISEASE [None]
  - SKIN LESION [None]
